FAERS Safety Report 25838817 (Version 1)
Quarter: 2025Q3

REPORT INFORMATION
  Report Type: Report from Study
  Country: TW (occurrence: TW)
  Receive Date: 20250924
  Receipt Date: 20250924
  Transmission Date: 20251020
  Serious: Yes (Hospitalization, Other)
  Sender: AMGEN
  Company Number: TW-AMGEN-TWNNI2025187860

PATIENT
  Age: 48 Year
  Sex: Female

DRUGS (2)
  1. TARLATAMAB [Suspect]
     Active Substance: TARLATAMAB
     Indication: Small cell lung cancer
     Route: 065
     Dates: start: 20250224
  2. TARLATAMAB [Suspect]
     Active Substance: TARLATAMAB
     Route: 065
     Dates: start: 20250303

REACTIONS (8)
  - Metastases to central nervous system [Unknown]
  - Hypotension [Unknown]
  - Dysarthria [Unknown]
  - Facial paralysis [Unknown]
  - Metastases to bone [Unknown]
  - Metastases to liver [Unknown]
  - Blood lactate dehydrogenase increased [Unknown]
  - Back pain [Unknown]

NARRATIVE: CASE EVENT DATE: 20250225
